FAERS Safety Report 10793298 (Version 4)
Quarter: 2015Q1

REPORT INFORMATION
  Report Type: Spontaneous
  Country: CO (occurrence: CO)
  Receive Date: 20150213
  Receipt Date: 20150304
  Transmission Date: 20150721
  Serious: Yes (Death)
  Sender: FDA-Public Use
  Company Number: CO-JNJFOC-20150205191

PATIENT
  Age: 62 Year
  Sex: Male
  Weight: 60 kg

DRUGS (1)
  1. SIMPONI [Suspect]
     Active Substance: GOLIMUMAB
     Indication: ANKYLOSING SPONDYLITIS
     Route: 058
     Dates: start: 20150128, end: 20150128

REACTIONS (3)
  - Cardio-respiratory arrest [Fatal]
  - Influenza [Unknown]
  - Dyspnoea [Fatal]

NARRATIVE: CASE EVENT DATE: 20150203
